FAERS Safety Report 9694648 (Version 3)
Quarter: 2013Q4

REPORT INFORMATION
  Report Type: Report from Study
  Country: US (occurrence: US)
  Receive Date: 20131119
  Receipt Date: 20131125
  Transmission Date: 20140711
  Serious: Yes (Other)
  Sender: FDA-Public Use
  Company Number: US-ROCHE-1260907

PATIENT
  Sex: Male

DRUGS (8)
  1. LUCENTIS [Suspect]
     Indication: CYSTOID MACULAR OEDEMA
     Route: 065
  2. LUCENTIS [Suspect]
     Indication: DIABETIC RETINAL OEDEMA
     Dosage: RIGHT EYE
     Route: 065
     Dates: start: 20131110
  3. AVASTIN [Suspect]
     Indication: DIABETIC RETINAL OEDEMA
     Route: 065
     Dates: start: 20130726
  4. AMLODIPINE [Concomitant]
     Route: 048
  5. DOXAZOSIN [Concomitant]
     Route: 048
  6. FUROSEMIDE [Concomitant]
     Route: 048
  7. KETOCONAZOLE [Concomitant]
     Route: 065
  8. TIMOLOLMALEAT [Concomitant]

REACTIONS (5)
  - Diabetic retinal oedema [Unknown]
  - Retinal vein occlusion [Unknown]
  - Cataract [Unknown]
  - Ocular hypertension [Unknown]
  - Intraocular pressure increased [Unknown]
